FAERS Safety Report 6568280-4 (Version None)
Quarter: 2010Q1

REPORT INFORMATION
  Report Type: 
  Country: None (occurrence: None)
  Receive Date: 20100129
  Receipt Date: 20100121
  Transmission Date: 20100710
  Serious: Yes (Death, Hospitalization)
  Sender: FDA-Public Use
  Company Number: CIP10000138

PATIENT
  Age: 80 Year
  Sex: Male

DRUGS (3)
  1. ASACOL [Suspect]
     Dosage: 400 MG THREE TIMES A DAY, ORAL
     Route: 048
     Dates: start: 20091001
  2. PRILOSEC /00661201/ (OMEPRAZOLE) [Concomitant]
  3. CARDURA [Concomitant]

REACTIONS (1)
  - PNEUMONIA [None]
